FAERS Safety Report 10951609 (Version 2)
Quarter: 2015Q2

REPORT INFORMATION
  Report Type: Spontaneous
  Country: US (occurrence: US)
  Receive Date: 20150324
  Receipt Date: 20150525
  Transmission Date: 20150821
  Serious: No
  Sender: FDA-Public Use
  Company Number: US-JNJFOC-20130414839

PATIENT
  Age: 48 Year
  Sex: Female
  Weight: 62.6 kg

DRUGS (1)
  1. RISPERDAL CONSTA [Suspect]
     Active Substance: RISPERIDONE
     Indication: ACCIDENTAL EXPOSURE TO PRODUCT
     Route: 065

REACTIONS (4)
  - Product quality issue [Unknown]
  - Accidental exposure to product [Unknown]
  - Product quality issue [Unknown]
  - Product container issue [Unknown]

NARRATIVE: CASE EVENT DATE: 20130423
